FAERS Safety Report 7412228-7 (Version None)
Quarter: 2011Q2

REPORT INFORMATION
  Report Type: 
  Country: None (occurrence: None)
  Receive Date: 20110413
  Receipt Date: 20110405
  Transmission Date: 20111010
  Serious: Yes (Other)
  Sender: FDA-Public Use
  Company Number: US-RB-023966-11

PATIENT
  Age: 52 Year
  Sex: Male

DRUGS (2)
  1. MUCINEX DM [Suspect]
     Dosage: PATIENT TOOK AN UNKNOWN DOSAGE OF THE PRODUCT THREE TIMES.
     Route: 048
  2. MUCINEX DM [Suspect]
     Indication: RESPIRATORY TRACT CONGESTION
     Dosage: PATIENT TOOK AN UNKNOWN DOSAGE OF THE PRODUCT THREE TIMES.
     Route: 048

REACTIONS (1)
  - EPISTAXIS [None]
